FAERS Safety Report 5749249-6 (Version None)
Quarter: 2008Q2

REPORT INFORMATION
  Report Type: 
  Country: None (occurrence: None)
  Receive Date: 20080521
  Receipt Date: 20080521
  Transmission Date: 20081010
  Serious: Yes (Life-Threatening, Hospitalization)
  Sender: FDA-Public Use
  Company Number: None

PATIENT
  Sex: Male
  Weight: 68 kg

DRUGS (1)
  1. EPOGEN [Suspect]
     Indication: ANAEMIA
     Dosage: 3 X WEEK HEMODIALYSIS
     Dates: start: 20070428, end: 20080520

REACTIONS (2)
  - BLOOD PRESSURE INCREASED [None]
  - DRUG INTOLERANCE [None]
